FAERS Safety Report 26039668 (Version 1)
Quarter: 2025Q4

REPORT INFORMATION
  Report Type: Spontaneous
  Country: JP (occurrence: JP)
  Receive Date: 20251113
  Receipt Date: 20251113
  Transmission Date: 20260117
  Serious: Yes (Other)
  Sender: EMD SERONO INC
  Company Number: JP-Merck Healthcare KGaA-2025056131

PATIENT
  Age: 81 Year
  Sex: Female

DRUGS (1)
  1. TEPMETKO [Suspect]
     Active Substance: TEPOTINIB HYDROCHLORIDE
     Indication: Adenocarcinoma

REACTIONS (5)
  - Metastases to lung [Unknown]
  - Rash [Recovered/Resolved]
  - Oedema [Recovering/Resolving]
  - Nausea [Recovered/Resolved]
  - Off label use [Unknown]
